FAERS Safety Report 4365287-2 (Version None)
Quarter: 2004Q2

REPORT INFORMATION
  Report Type: 
  Country: None (occurrence: None)
  Receive Date: 20040525
  Receipt Date: 20040223
  Transmission Date: 20050107
  Serious: No
  Sender: FDA-Public Use
  Company Number: PHEH2004US01276

PATIENT
  Age: 53 Year
  Sex: Female

DRUGS (3)
  1. ZELNORM [Suspect]
     Indication: IRRITABLE BOWEL SYNDROME
     Dosage: QD, ORAL
     Route: 048
     Dates: start: 20030901
  2. PREMARIN [Concomitant]
  3. IMIPRAMINE [Concomitant]

REACTIONS (2)
  - HAEMATOMA [None]
  - OEDEMA PERIPHERAL [None]
